FAERS Safety Report 15374612 (Version 3)
Quarter: 2018Q4

REPORT INFORMATION
  Report Type: Spontaneous
  Country: IT (occurrence: IT)
  Receive Date: 20180912
  Receipt Date: 20181012
  Transmission Date: 20190204
  Serious: Yes (Hospitalization)
  Sender: FDA-Public Use
  Company Number: IT-PFIZER INC-2018363031

PATIENT
  Age: 56 Year
  Sex: Male

DRUGS (6)
  1. XANAX [Suspect]
     Active Substance: ALPRAZOLAM
     Indication: DEPRESSION
     Dosage: 30 MG, SINGLE
     Route: 048
     Dates: start: 20170729, end: 20170730
  2. SERTRALINE [Concomitant]
     Active Substance: SERTRALINE HYDROCHLORIDE
     Dosage: 50 MG, UNK
     Route: 048
  3. TAVOR (LORAZEPAM) [Suspect]
     Active Substance: LORAZEPAM
     Dosage: 62.5 MG, WEEKLY
     Route: 048
     Dates: start: 20170729, end: 20170730
  4. ANAFRANIL [Concomitant]
     Active Substance: CLOMIPRAMINE HYDROCHLORIDE
     Dosage: 50 MG, UNK
     Route: 030
  5. QUETIAPINA ACCORD [Concomitant]
     Active Substance: QUETIAPINE
     Dosage: 100 MG, UNK
     Route: 048
  6. ANAFRANIL [Concomitant]
     Active Substance: CLOMIPRAMINE HYDROCHLORIDE
     Dosage: 112.5 MG, UNK
     Route: 048

REACTIONS (3)
  - Intentional self-injury [Recovered/Resolved]
  - Intentional overdose [Unknown]
  - Sopor [Recovered/Resolved]

NARRATIVE: CASE EVENT DATE: 20170730
